FAERS Safety Report 16960195 (Version 2)
Quarter: 2020Q2

REPORT INFORMATION
  Report Type: Spontaneous
  Country: CA (occurrence: CA)
  Receive Date: 20191025
  Receipt Date: 20200527
  Transmission Date: 20200713
  Serious: Yes (Other)
  Sender: FDA-Public Use
  Company Number: CA-TEVA-2019-CA-1126291

PATIENT
  Sex: Male

DRUGS (2)
  1. PROPOFOL. [Suspect]
     Active Substance: PROPOFOL
     Indication: SEDATIVE THERAPY
     Route: 065
  2. PROPOFOL. [Suspect]
     Active Substance: PROPOFOL
     Indication: ANAESTHESIA
     Route: 050

REACTIONS (7)
  - Electrocardiogram ST segment abnormal [Unknown]
  - Tachyarrhythmia [Unknown]
  - Dyskinesia [Unknown]
  - Bradycardia [Unknown]
  - Hypoxia [Unknown]
  - Agitation [Unknown]
  - Obstructive airways disorder [Unknown]
